FAERS Safety Report 9639394 (Version 1)
Quarter: 2013Q4

REPORT INFORMATION
  Report Type: Spontaneous
  Country: US (occurrence: US)
  Receive Date: 20131022
  Receipt Date: 20131022
  Transmission Date: 20140711
  Serious: Yes (Other)
  Sender: FDA-Public Use
  Company Number: US-RB-059695-13

PATIENT
  Sex: Male

DRUGS (4)
  1. SUBOXONE UNSPECIFIED [Suspect]
     Indication: DRUG DEPENDENCE
     Dosage: DOSING DETAILS UNKNOWN
     Route: 065
  2. ADDERALL [Suspect]
     Route: 065
     Dates: start: 201111, end: 201202
  3. ADDERALL [Suspect]
     Indication: ATTENTION DEFICIT/HYPERACTIVITY DISORDER
     Dosage: 30 MG IN THE MORNING AND 20 MG AT NIGHT
     Route: 065
     Dates: start: 201202, end: 2012
  4. ADDERALL [Suspect]
     Route: 065
     Dates: start: 2012

REACTIONS (13)
  - Overdose [Unknown]
  - Restlessness [Recovered/Resolved]
  - Disturbance in attention [Recovered/Resolved]
  - Irritability [Recovered/Resolved]
  - Partner stress [Recovered/Resolved]
  - Hallucination [Unknown]
  - Family stress [Recovered/Resolved]
  - Drug abuse [Recovered/Resolved]
  - Paranoia [Unknown]
  - Legal problem [Recovered/Resolved]
  - Homicide [Recovered/Resolved]
  - Physical assault [Recovered/Resolved]
  - Theft [Recovered/Resolved]
